FAERS Safety Report 8868858 (Version 1)
Quarter: 2012Q4

REPORT INFORMATION
  Report Type: 
  Country: US (occurrence: US)
  Receive Date: 20121026
  Receipt Date: 20121026
  Transmission Date: 20130627
  Serious: No
  Sender: FDA-Public Use
  Company Number: US-AMGEN-USASP2012047821

PATIENT
  Age: 52 Year
  Sex: Female
  Weight: 83.9 kg

DRUGS (8)
  1. ENBREL [Suspect]
     Indication: PRODUCT USED FOR UNKNOWN INDICATION
     Dosage: 50 mg, qwk
     Route: 058
     Dates: end: 20120619
  2. LEVOTHYROXIN [Concomitant]
     Dosage: 25 mug, UNK
  3. FISH OIL [Concomitant]
     Dosage: UNK
  4. IRON [Concomitant]
     Dosage: 325 mg, UNK
  5. CALCIUM [Concomitant]
     Dosage: 500 UNK, UNK
  6. MULTIVITAMIN                       /00097801/ [Concomitant]
     Dosage: UNK
  7. METHYLPRED [Concomitant]
     Dosage: 8 mg, UNK
  8. B 12 [Concomitant]
     Dosage: 1 mg, UNK

REACTIONS (1)
  - Therapeutic response decreased [Unknown]
